FAERS Safety Report 18228406 (Version 2)
Quarter: 2020Q4

REPORT INFORMATION
  Report Type: Spontaneous
  Country: AU (occurrence: AU)
  Receive Date: 20200903
  Receipt Date: 20201207
  Transmission Date: 20210113
  Serious: No
  Sender: FDA-Public Use
  Company Number: AU-GLAXOSMITHKLINE-AU2020APC171812

PATIENT
  Age: 74 Year
  Sex: Female
  Weight: 60 kg

DRUGS (2)
  1. BREO ELLIPTA [Suspect]
     Active Substance: FLUTICASONE FUROATE\VILANTEROL TRIFENATATE
     Indication: ASTHMA
     Dosage: UNK, 100/25.
     Route: 055
  2. BREO ELLIPTA [Suspect]
     Active Substance: FLUTICASONE FUROATE\VILANTEROL TRIFENATATE
     Dosage: UNK (3/WEEK)
     Route: 055
     Dates: start: 2017

REACTIONS (1)
  - Dysgeusia [Recovering/Resolving]
